FAERS Safety Report 25619027 (Version 1)
Quarter: 2025Q3

REPORT INFORMATION
  Report Type: Spontaneous
  Country: EU (occurrence: EU)
  Receive Date: 20250729
  Receipt Date: 20250729
  Transmission Date: 20251020
  Serious: Yes (Hospitalization, Other)
  Sender: ROCHE
  Company Number: EU-ROCHE-10000345396

PATIENT
  Age: 60 Year
  Sex: Female

DRUGS (2)
  1. ALECTINIB [Suspect]
     Active Substance: ALECTINIB
     Indication: Non-small cell lung cancer
     Route: 065
  2. LORLATINIB [Suspect]
     Active Substance: LORLATINIB
     Indication: Non-small cell lung cancer
     Dosage: START DATE: 03-JUN-2025
     Route: 065

REACTIONS (11)
  - Psychotic disorder [Unknown]
  - Epilepsy [Unknown]
  - Hallucination, auditory [Unknown]
  - Brain oedema [Recovered/Resolved]
  - Dizziness [Unknown]
  - Dysarthria [Recovering/Resolving]
  - Hepatotoxicity [Recovered/Resolved]
  - Metastases to central nervous system [Unknown]
  - Speech disorder [Unknown]
  - Psychotic symptom [Unknown]
  - Brain oedema [Unknown]

NARRATIVE: CASE EVENT DATE: 20250601
